FAERS Safety Report 17486415 (Version 2)
Quarter: 2025Q3

REPORT INFORMATION
  Report Type: Spontaneous
  Country: EU (occurrence: EU)
  Receive Date: 20200303
  Receipt Date: 20250801
  Transmission Date: 20251021
  Serious: Yes (Hospitalization)
  Sender: AUROBINDO
  Company Number: EU-002147023-NVSC2019IT075159

PATIENT
  Age: 64 Year
  Sex: Female

DRUGS (5)
  1. ONDANSETRON [Suspect]
     Active Substance: ONDANSETRON
     Indication: Prophylaxis of nausea and vomiting
     Dosage: 2 MILLIGRAM, ONCE A DAY
     Route: 042
  2. ONDANSETRON [Suspect]
     Active Substance: ONDANSETRON
     Dosage: 4 MILLIGRAM, ONCE A DAY, IN 100 ML 0.9% SALINE SOLUTION
     Route: 042
  3. METHYLPREDNISOLONE [Suspect]
     Active Substance: METHYLPREDNISOLONE
     Indication: Premedication
     Dosage: 20 MILLIGRAM, ONCE A DAY
     Route: 042
  4. METHYLPREDNISOLONE [Suspect]
     Active Substance: METHYLPREDNISOLONE
     Dosage: 10 MILLIGRAM, ONCE A DAY
     Route: 042
  5. AZACITIDINE [Suspect]
     Active Substance: AZACITIDINE
     Indication: Product used for unknown indication
     Dosage: 75 MILLIGRAM/SQ. METER, ONCE A DAY
     Route: 065

REACTIONS (8)
  - Seizure [Unknown]
  - Vomiting [Unknown]
  - Weight decreased [Unknown]
  - Electrolyte imbalance [Unknown]
  - Dehydration [Unknown]
  - Constipation [Unknown]
  - Dyspepsia [Unknown]
  - Headache [Unknown]
